FAERS Safety Report 21008340 (Version 1)
Quarter: 2022Q2

REPORT INFORMATION
  Report Type: Spontaneous
  Country: DE (occurrence: DE)
  Receive Date: 20220627
  Receipt Date: 20220627
  Transmission Date: 20220721
  Serious: Yes (Life-Threatening, Hospitalization, Other)
  Sender: FDA-Public Use
  Company Number: None

PATIENT
  Age: 65 Year
  Sex: Female
  Weight: 99 kg

DRUGS (12)
  1. JARDIANCE [Suspect]
     Active Substance: EMPAGLIFLOZIN
     Indication: Diabetic nephropathy
     Dates: start: 20200813
  2. JARDIANCE [Suspect]
     Active Substance: EMPAGLIFLOZIN
     Indication: Type 2 diabetes mellitus
  3. JARDIANCE [Suspect]
     Active Substance: EMPAGLIFLOZIN
     Indication: Coronary artery disease
  4. Losartan 100 1 A Pharma [Concomitant]
     Indication: Hypertension
  5. Allopurinol 300 1 A Pharma [Concomitant]
     Indication: Gout
  6. Pantoprazol 1 A Pharma 20 mg magensaftresistente Tabletten [Concomitant]
     Indication: Prophylaxis against gastrointestinal ulcer
  7. Novorapid Penfill 100 E /ml Injektionsl?sung [Concomitant]
     Indication: Type 2 diabetes mellitus
     Dosage: (INSULIN SCHEDULE ACCORDING TO BLOOD SUGAR)
  8. Atorvastain 1 A Pharma 20 mg Filmtabletten [Concomitant]
     Indication: Blood cholesterol increased
  9. CHOLECALCIFEROL [Concomitant]
     Active Substance: CHOLECALCIFEROL
     Indication: Vitamin D deficiency
  10. ASPIRIN [Concomitant]
     Active Substance: ASPIRIN
     Indication: Anticoagulant therapy
  11. MetoproloI Succinat TAD 95 mg Retardtabletten [Concomitant]
     Indication: Hypertension
  12. Liprolog 200 [Concomitant]
     Indication: Product used for unknown indication
     Dosage: TEST: GUPF 3-4:00: 15-20IU

REACTIONS (3)
  - Ketoacidosis [Recovering/Resolving]
  - Urosepsis [Recovering/Resolving]
  - Acute kidney injury [Recovering/Resolving]

NARRATIVE: CASE EVENT DATE: 20220501
